FAERS Safety Report 21000206 (Version 5)
Quarter: 2023Q1

REPORT INFORMATION
  Report Type: Report from Study
  Country: ES (occurrence: None)
  Receive Date: 20220623
  Receipt Date: 20230306
  Transmission Date: 20230418
  Serious: Yes (Hospitalization)
  Sender: FDA-Public Use
  Company Number: ES-ROCHE-3121543

PATIENT
  Age: 76 Year
  Sex: Male
  Weight: 81.1 kg

DRUGS (65)
  1. TIRAGOLUMAB [Suspect]
     Active Substance: TIRAGOLUMAB
     Indication: Transitional cell carcinoma
     Dosage: LAST DOSE OF TIRAGOLUMAB ADMIMISTERED PRIOR TO AE IS 600 MG?ON 22/MAR/2022 RECEIVED  MOST RECENT DOS
     Route: 042
     Dates: start: 20220208
  2. ATEZOLIZUMAB [Suspect]
     Active Substance: ATEZOLIZUMAB
     Indication: Transitional cell carcinoma
     Dosage: LAST DOSE OF ATEZOLIZUMAB ADMINISTERED PRIOR TO AE IS 1200 MG?ON 22/MAR/2022 RECEIVED MOST RECENT DO
     Route: 041
     Dates: start: 20220208
  3. AMOROLFINE [Concomitant]
     Active Substance: AMOROLFINE
     Dosage: DOSE: 1 OTHER
     Route: 061
     Dates: start: 20211118, end: 20220608
  4. AMOROLFINE [Concomitant]
     Active Substance: AMOROLFINE
     Dosage: DOSE: 1 OTHER
     Route: 061
     Dates: start: 20220701
  5. ATORVASTATIN CALCIUM [Concomitant]
     Active Substance: ATORVASTATIN CALCIUM
     Indication: Hypercholesterolaemia
     Route: 048
     Dates: start: 20210820, end: 20220608
  6. ATORVASTATIN CALCIUM [Concomitant]
     Active Substance: ATORVASTATIN CALCIUM
     Route: 048
     Dates: start: 20220701
  7. CINITAPRIDE [Concomitant]
     Active Substance: CINITAPRIDE
     Indication: Gastrooesophageal reflux disease
     Route: 048
     Dates: start: 201911, end: 20220608
  8. CINITAPRIDE [Concomitant]
     Active Substance: CINITAPRIDE
     Route: 048
     Dates: start: 20220701
  9. CLOPIDOGREL BESILATE [Concomitant]
     Active Substance: CLOPIDOGREL BESILATE
     Indication: Disease risk factor
     Route: 048
     Dates: start: 20211118, end: 20220608
  10. CLOPIDOGREL BESILATE [Concomitant]
     Active Substance: CLOPIDOGREL BESILATE
     Route: 048
     Dates: start: 20220701
  11. DUTASTERIDE [Concomitant]
     Active Substance: DUTASTERIDE
     Indication: Benign prostatic hyperplasia
     Route: 048
     Dates: start: 202111, end: 20220608
  12. DUTASTERIDE [Concomitant]
     Active Substance: DUTASTERIDE
     Route: 048
     Dates: start: 20220701
  13. TAMSULOSIN HYDROCHLORIDE [Concomitant]
     Active Substance: TAMSULOSIN HYDROCHLORIDE
     Indication: Benign prostatic hyperplasia
     Route: 048
     Dates: start: 20211118, end: 20220608
  14. TAMSULOSIN HYDROCHLORIDE [Concomitant]
     Active Substance: TAMSULOSIN HYDROCHLORIDE
     Route: 048
     Dates: start: 20220701
  15. TEA LEAF [Concomitant]
     Active Substance: TEA LEAF
     Indication: Prophylaxis
     Dosage: 1 OTHER
     Route: 048
     Dates: end: 20220608
  16. TEA LEAF [Concomitant]
     Active Substance: TEA LEAF
     Dosage: 1 OTHER
     Route: 048
     Dates: start: 20220701
  17. LEVOSULPIRIDE [Concomitant]
     Active Substance: LEVOSULPIRIDE
     Indication: Gastrooesophageal reflux disease
     Route: 048
     Dates: start: 202111, end: 20220608
  18. LEVOSULPIRIDE [Concomitant]
     Active Substance: LEVOSULPIRIDE
     Route: 048
     Dates: start: 20220701
  19. LEVOTHYROXINE SODIUM [Concomitant]
     Active Substance: LEVOTHYROXINE SODIUM
     Indication: Hypothyroidism
     Route: 048
     Dates: start: 201903
  20. LEVOTHYROXINE SODIUM [Concomitant]
     Active Substance: LEVOTHYROXINE SODIUM
     Route: 048
     Dates: start: 201903, end: 20220608
  21. LEVOTHYROXINE SODIUM [Concomitant]
     Active Substance: LEVOTHYROXINE SODIUM
     Route: 048
     Dates: start: 20220701
  22. LEVOTHYROXINE SODIUM [Concomitant]
     Active Substance: LEVOTHYROXINE SODIUM
     Route: 048
     Dates: start: 20220701
  23. LORAZEPAM [Concomitant]
     Active Substance: LORAZEPAM
     Indication: Insomnia
     Route: 048
     Dates: start: 201711, end: 20220608
  24. LORAZEPAM [Concomitant]
     Active Substance: LORAZEPAM
     Route: 048
     Dates: start: 20220616, end: 20220630
  25. LORAZEPAM [Concomitant]
     Active Substance: LORAZEPAM
     Route: 048
     Dates: start: 20220701
  26. MATE [Concomitant]
     Dosage: DOSE: 1 OTHER
     Route: 048
     Dates: end: 20220608
  27. MATE [Concomitant]
     Dosage: DOSE: 1 OTHER
     Route: 048
     Dates: start: 20220701
  28. PANTOPRAZOLE SODIUM [Concomitant]
     Active Substance: PANTOPRAZOLE SODIUM
     Indication: Gastrooesophageal reflux disease
     Route: 048
     Dates: start: 201911, end: 20220608
  29. PANTOPRAZOLE SODIUM [Concomitant]
     Active Substance: PANTOPRAZOLE SODIUM
     Route: 048
     Dates: start: 20220701
  30. ACETAMINOPHEN [Concomitant]
     Active Substance: ACETAMINOPHEN
     Indication: Pain prophylaxis
     Route: 048
     Dates: start: 2018, end: 20220608
  31. ACETAMINOPHEN [Concomitant]
     Active Substance: ACETAMINOPHEN
     Route: 042
     Dates: start: 20220622, end: 20220630
  32. ACETAMINOPHEN [Concomitant]
     Active Substance: ACETAMINOPHEN
     Route: 048
     Dates: start: 20220701
  33. AMPICILLIN [Concomitant]
     Active Substance: AMPICILLIN
     Route: 042
     Dates: start: 20220525, end: 20220531
  34. AMPICILLIN [Concomitant]
     Active Substance: AMPICILLIN
     Route: 042
     Dates: start: 20220525, end: 20220525
  35. BEMIPARIN [Concomitant]
     Active Substance: BEMIPARIN
     Route: 042
     Dates: start: 20220603, end: 20220606
  36. BEMIPARIN [Concomitant]
     Active Substance: BEMIPARIN
     Route: 058
     Dates: start: 20220522, end: 20220531
  37. CEFTRIAXONE [Concomitant]
     Active Substance: CEFTRIAXONE
     Route: 042
     Dates: start: 20220527, end: 20220603
  38. FUROSEMIDE [Concomitant]
     Active Substance: FUROSEMIDE
     Route: 042
     Dates: start: 20220531, end: 20220606
  39. LACTULOSE [Concomitant]
     Active Substance: LACTULOSE
     Indication: Constipation prophylaxis
     Route: 048
     Dates: start: 20220526, end: 20220606
  40. LACTULOSE [Concomitant]
     Active Substance: LACTULOSE
     Route: 048
     Dates: start: 20220610, end: 20220630
  41. METAMIZOLE [Concomitant]
     Active Substance: METAMIZOLE
     Indication: Pain
     Route: 042
     Dates: start: 20220529, end: 20220530
  42. METHYLPREDNISOLONE [Concomitant]
     Active Substance: METHYLPREDNISOLONE
     Indication: Hypertransaminasaemia
     Route: 042
     Dates: start: 20220530, end: 20220606
  43. METHYLPREDNISOLONE [Concomitant]
     Active Substance: METHYLPREDNISOLONE
     Route: 042
     Dates: start: 20220609, end: 20220609
  44. METHYLPREDNISOLONE [Concomitant]
     Active Substance: METHYLPREDNISOLONE
     Route: 042
     Dates: start: 20220625, end: 20220630
  45. ISOPLASMAL G [Concomitant]
     Route: 042
     Dates: start: 20220521, end: 20220521
  46. OMEPRAZOLE [Concomitant]
     Active Substance: OMEPRAZOLE
     Route: 042
     Dates: start: 20220603, end: 20220606
  47. CALCIUM [Concomitant]
     Active Substance: CALCIUM
     Route: 048
     Dates: start: 20220602, end: 20220606
  48. METHYLPREDNISOLONE [Concomitant]
     Active Substance: METHYLPREDNISOLONE
     Indication: Hypertransaminasaemia
     Route: 042
     Dates: start: 20220609, end: 20220609
  49. METHYLPREDNISOLONE [Concomitant]
     Active Substance: METHYLPREDNISOLONE
     Route: 042
     Dates: start: 20220625, end: 20220630
  50. MYCOPHENOLATE MOFETIL [Concomitant]
     Active Substance: MYCOPHENOLATE MOFETIL
     Indication: Prophylaxis
     Route: 042
     Dates: start: 20220609, end: 20220625
  51. PANTOPRAZOLE [Concomitant]
     Active Substance: PANTOPRAZOLE
     Indication: Gastrooesophageal reflux disease
     Route: 048
     Dates: start: 20220609, end: 20220625
  52. CLOPIDOGREL [Concomitant]
     Active Substance: CLOPIDOGREL BISULFATE
     Route: 048
     Dates: start: 20220609, end: 20220625
  53. LEVOTHYROXINE [Concomitant]
     Active Substance: LEVOTHYROXINE
     Indication: Hypothyroidism
     Route: 048
     Dates: start: 20220609, end: 20220630
  54. LEVOTHYROXINE [Concomitant]
     Active Substance: LEVOTHYROXINE
     Route: 048
     Dates: start: 20220621, end: 20220630
  55. TRIMETHOPRIM [Concomitant]
     Active Substance: TRIMETHOPRIM
     Indication: Prophylaxis urinary tract infection
     Route: 048
     Dates: start: 20220610, end: 20220630
  56. SULFAMETHOXAZOLE [Concomitant]
     Active Substance: SULFAMETHOXAZOLE
     Indication: Infection prophylaxis
     Route: 048
     Dates: start: 20220610, end: 20220630
  57. ENOXAPARIN BIOSIMILAR [Concomitant]
     Route: 058
     Dates: start: 20220612, end: 20220625
  58. PREDNISONE [Concomitant]
     Active Substance: PREDNISONE
     Indication: Hypertransaminasaemia
     Route: 048
     Dates: start: 20220616, end: 20220625
  59. PREDNISONE [Concomitant]
     Active Substance: PREDNISONE
     Route: 048
     Dates: start: 20220726
  60. METOCLOPRAMIDE [Concomitant]
     Active Substance: METOCLOPRAMIDE
     Indication: Prophylaxis of nausea and vomiting
     Route: 042
     Dates: start: 20220618, end: 20220630
  61. ONDANSETRON [Concomitant]
     Active Substance: ONDANSETRON
     Indication: Prophylaxis of nausea and vomiting
     Route: 042
     Dates: start: 20220618, end: 20220630
  62. MYCOPHENOLATE MOFETIL [Concomitant]
     Active Substance: MYCOPHENOLATE MOFETIL
     Indication: Prophylaxis
     Route: 048
     Dates: start: 20220625, end: 20220625
  63. OMEPRAZOLE [Concomitant]
     Active Substance: OMEPRAZOLE
     Indication: Gastrointestinal disorder prophylaxis
     Route: 042
     Dates: start: 20220625, end: 20220630
  64. TRANEXAMIC ACID [Concomitant]
     Active Substance: TRANEXAMIC ACID
     Route: 042
     Dates: start: 20220626, end: 20220630
  65. SODIUM CHLORIDE [Concomitant]
     Active Substance: SODIUM CHLORIDE
     Indication: Constipation prophylaxis
     Dosage: DOSE:1 OTHER
     Route: 054
     Dates: start: 20220628, end: 20220630

REACTIONS (1)
  - Hypertransaminasaemia [Recovering/Resolving]

NARRATIVE: CASE EVENT DATE: 20220521
